FAERS Safety Report 17264071 (Version 2)
Quarter: 2025Q4

REPORT INFORMATION
  Report Type: Spontaneous
  Country: EU (occurrence: EU)
  Receive Date: 20200113
  Receipt Date: 20251008
  Transmission Date: 20260117
  Serious: Yes (Death, Hospitalization, Other)
  Sender: MYLAN
  Company Number: EU-BRUNO-20190630

PATIENT
  Age: 16 Year
  Sex: Male

DRUGS (8)
  1. MYCOPHENOLATE MOFETIL [Suspect]
     Active Substance: MYCOPHENOLATE MOFETIL
     Indication: Chronic myeloid leukaemia
     Dosage: UNK
  2. MYCOPHENOLATE MOFETIL [Suspect]
     Active Substance: MYCOPHENOLATE MOFETIL
     Indication: Bone marrow conditioning regimen
  3. VORICONAZOLE [Suspect]
     Active Substance: VORICONAZOLE
     Indication: Aspergillus infection
     Dosage: UNK
  4. PREDNISONE [Suspect]
     Active Substance: PREDNISONE
     Indication: Chronic myeloid leukaemia
     Dosage: UNK
  5. PREDNISONE [Suspect]
     Active Substance: PREDNISONE
     Indication: Bone marrow conditioning regimen
  6. AMPHOTERICIN B [Suspect]
     Active Substance: AMPHOTERICIN B
     Indication: Aspergillus infection
     Dosage: UNK
  7. CYCLOSPORINE [Suspect]
     Active Substance: CYCLOSPORINE
     Indication: Chronic myeloid leukaemia
     Dosage: UNK
  8. CYCLOSPORINE [Suspect]
     Active Substance: CYCLOSPORINE
     Indication: Bone marrow conditioning regimen

REACTIONS (9)
  - Aspergillus infection [Fatal]
  - Treatment failure [Fatal]
  - Bronchopulmonary aspergillosis [Fatal]
  - Cerebral aspergillosis [Fatal]
  - Cytomegalovirus infection [Recovering/Resolving]
  - Neutropenia [Not Recovered/Not Resolved]
  - Cytomegalovirus viraemia [Unknown]
  - Acute kidney injury [Unknown]
  - Hypokalaemia [Unknown]
